FAERS Safety Report 18454330 (Version 3)
Quarter: 2020Q4

REPORT INFORMATION
  Report Type: Spontaneous
  Country: ES (occurrence: ES)
  Receive Date: 20201102
  Receipt Date: 20201207
  Transmission Date: 20210114
  Serious: Yes (Other)
  Sender: FDA-Public Use
  Company Number: ES-UCBSA-2020043054

PATIENT
  Age: 16 Year
  Sex: Female

DRUGS (3)
  1. VALPROATE [Concomitant]
     Active Substance: VALPROIC ACID
     Indication: PARTIAL SEIZURES
     Dosage: UNK
     Dates: end: 201209
  2. BRIVIACT [Concomitant]
     Active Substance: BRIVARACETAM
     Indication: EPILEPSY
     Dosage: UNK
     Dates: start: 20191223, end: 20200302
  3. KEPPRA [Suspect]
     Active Substance: LEVETIRACETAM
     Indication: PARTIAL SEIZURES
     Dosage: 500 MILLIGRAM, 2X/DAY (BID)
     Route: 048
     Dates: end: 2020

REACTIONS (5)
  - Seizure [Recovered/Resolved]
  - Mood swings [Recovered/Resolved]
  - Generalised tonic-clonic seizure [Unknown]
  - Irritability [Recovered/Resolved]
  - Aggression [Recovered/Resolved]

NARRATIVE: CASE EVENT DATE: 202002
